FAERS Safety Report 11106611 (Version 1)
Quarter: 2015Q2

REPORT INFORMATION
  Report Type: Spontaneous
  Country: US (occurrence: None)
  Receive Date: 20150511
  Receipt Date: 20150511
  Transmission Date: 20150821
  Serious: Yes (Other)
  Sender: FDA-Public Use
  Company Number: None

PATIENT
  Age: 69 Year
  Sex: Female
  Weight: 57.15 kg

DRUGS (15)
  1. COENZYME Q10 [Concomitant]
     Active Substance: UBIDECARENONE
  2. VITAMIN E [Concomitant]
     Active Substance: .ALPHA.-TOCOPHEROL
  3. OMEGA Q PLUS [Concomitant]
  4. AMITRIPTYLINE [Concomitant]
     Active Substance: AMITRIPTYLINE
  5. MILK THISTLE [Concomitant]
     Active Substance: MILK THISTLE
  6. RALOXIFINE [Concomitant]
  7. ASCORBIC ACID. [Concomitant]
     Active Substance: ASCORBIC ACID
  8. CALCIUM CITRATE [Concomitant]
     Active Substance: CALCIUM CITRATE
  9. ACTOS [Concomitant]
     Active Substance: PIOGLITAZONE HYDROCHLORIDE
  10. SELEMIUM [Concomitant]
  11. METANAX [Concomitant]
  12. KRILL OIL [Concomitant]
     Active Substance: DIETARY SUPPLEMENT
  13. VITAMIN B [Concomitant]
     Active Substance: VITAMIN B
  14. LIPTRUZET [Suspect]
     Active Substance: ATORVASTATIN CALCIUM\EZETIMIBE
     Indication: BLOOD CHOLESTEROL
  15. PSYLLIUM [Concomitant]
     Active Substance: PLANTAGO SEED

REACTIONS (1)
  - Paralysis [None]

NARRATIVE: CASE EVENT DATE: 20150412
